FAERS Safety Report 22761573 (Version 4)
Quarter: 2025Q1

REPORT INFORMATION
  Report Type: Spontaneous
  Country: US (occurrence: US)
  Receive Date: 20230728
  Receipt Date: 20250224
  Transmission Date: 20250408
  Serious: No
  Sender: PFIZER
  Company Number: US-PFIZER INC-PV202300127505

PATIENT
  Age: 66 Year
  Sex: Female
  Weight: 48.98 kg

DRUGS (1)
  1. IBRANCE [Suspect]
     Active Substance: PALBOCICLIB
     Indication: Neoplasm malignant
     Dosage: 100 MG, DAILY (21 DAYS ON 1 OFF)
     Route: 048
     Dates: start: 202212

REACTIONS (1)
  - General physical health deterioration [Unknown]
